FAERS Safety Report 5306901-4 (Version None)
Quarter: 2007Q2

REPORT INFORMATION
  Report Type: 
  Country: None (occurrence: None)
  Receive Date: 20070425
  Receipt Date: 20070419
  Transmission Date: 20071010
  Serious: Yes (Death)
  Sender: FDA-Public Use
  Company Number: JP-AVENTIS-200711083JP

PATIENT
  Sex: Female

DRUGS (9)
  1. RILUTEK [Suspect]
     Indication: AMYOTROPHIC LATERAL SCLEROSIS
     Route: 048
     Dates: start: 20051031, end: 20070227
  2. ALINAMIN F [Concomitant]
     Route: 048
     Dates: start: 20060216, end: 20070227
  3. METHYCOBAL                         /00056201/ [Concomitant]
     Route: 048
     Dates: start: 20050912, end: 20070227
  4. JUVELA N [Concomitant]
     Route: 048
     Dates: start: 20061219, end: 20070227
  5. JUVELA N [Concomitant]
     Route: 048
     Dates: start: 20061219, end: 20070227
  6. MESTINON [Concomitant]
     Route: 048
     Dates: start: 20051031, end: 20070227
  7. PURSENNID                          /00571901/ [Concomitant]
     Indication: CONSTIPATION
     Route: 048
     Dates: start: 20051031, end: 20051113
  8. PURSENNID                          /00571901/ [Concomitant]
     Route: 048
     Dates: start: 20060818
  9. CALONAL [Concomitant]
     Indication: HEADACHE
     Route: 048
     Dates: start: 20060608

REACTIONS (1)
  - DEATH [None]
